FAERS Safety Report 4724622-3 (Version None)
Quarter: 2005Q3

REPORT INFORMATION
  Report Type: 
  Country: None (occurrence: None)
  Receive Date: 20050726
  Receipt Date: 20050408
  Transmission Date: 20060218
  Serious: Yes (Hospitalization, Disabling, Other)
  Sender: FDA-Public Use
  Company Number: CA-MERCK-0504CAN00085

PATIENT
  Age: 51 Year
  Sex: Male

DRUGS (11)
  1. VIOXX [Suspect]
     Route: 048
     Dates: end: 20040901
  2. VIOXX [Suspect]
     Route: 048
     Dates: start: 20000501
  3. ASPIRIN [Concomitant]
     Route: 065
  4. ACETAMINOPHEN AND CODEINE PHOSPHATE [Concomitant]
     Route: 065
  5. ACETAMINOPHEN AND OXYCODONE HYDROCHLORIDE [Concomitant]
     Route: 065
  6. LORAZEPAM [Concomitant]
     Route: 065
  7. PERINDOPRIL ERBUMINE [Concomitant]
     Route: 065
  8. INDAPAMIDE [Concomitant]
     Route: 065
  9. GLYBURIDE [Concomitant]
     Route: 065
  10. ACETAMINOPHEN AND OXYCODONE HYDROCHLORIDE [Concomitant]
     Route: 065
  11. PAROXETINE HYDROCHLORIDE [Concomitant]
     Route: 065

REACTIONS (5)
  - BRAIN DAMAGE [None]
  - CEREBROVASCULAR ACCIDENT [None]
  - GLAUCOMA [None]
  - PAIN [None]
  - RETINAL ARTERY OCCLUSION [None]
